FAERS Safety Report 7218444-1 (Version None)
Quarter: 2011Q1

REPORT INFORMATION
  Report Type: 
  Country: None (occurrence: None)
  Receive Date: 20110110
  Receipt Date: 20110103
  Transmission Date: 20110831
  Serious: Yes (Other)
  Sender: FDA-Public Use
  Company Number: US-TEVA-262175USA

PATIENT
  Sex: Male

DRUGS (1)
  1. METOCLOPRAMIDE [Suspect]

REACTIONS (4)
  - MEIGS' SYNDROME [None]
  - MYOCLONUS [None]
  - CONVULSION [None]
  - RESTLESS LEGS SYNDROME [None]
